FAERS Safety Report 25548028 (Version 3)
Quarter: 2025Q3

REPORT INFORMATION
  Report Type: Spontaneous
  Country: BR (occurrence: BR)
  Receive Date: 20250714
  Receipt Date: 20250725
  Transmission Date: 20251021
  Serious: Yes (Hospitalization)
  Sender: ABBVIE
  Company Number: BR-ABBOTT-2025A-1400677

PATIENT
  Sex: Female
  Weight: 34 kg

DRUGS (1)
  1. CREON [Suspect]
     Active Substance: PANCRELIPASE AMYLASE\PANCRELIPASE LIPASE\PANCRELIPASE PROTEASE
     Indication: Product used for unknown indication
     Route: 048

REACTIONS (4)
  - Fatigue [Recovering/Resolving]
  - Off label use [Unknown]
  - Product use complaint [Unknown]
  - Cachexia [Recovering/Resolving]

NARRATIVE: CASE EVENT DATE: 20250101
